FAERS Safety Report 8525818-5 (Version None)
Quarter: 2012Q3

REPORT INFORMATION
  Report Type: 
  Country: None (occurrence: None)
  Receive Date: 20120720
  Receipt Date: 20120712
  Transmission Date: 20120928
  Serious: Yes (Other)
  Sender: FDA-Public Use
  Company Number: AT-ROXANE LABORATORIES, INC.-2012-RO-01541RO

PATIENT
  Age: 72 Year
  Sex: Female

DRUGS (9)
  1. DEXAMETHASONE [Suspect]
     Indication: MULTIPLE MYELOMA
     Dosage: 40 MG
     Route: 048
  2. DEXAMETHASONE [Suspect]
     Dosage: 12 MG
     Route: 048
     Dates: end: 20100301
  3. PAMIDRONATE DISODIUM [Suspect]
     Indication: MULTIPLE MYELOMA
  4. DEXAMETHASONE [Suspect]
     Dosage: 40 MG
     Route: 048
  5. LENALIDOMIDE [Suspect]
     Indication: MULTIPLE MYELOMA
     Dosage: 25 MG
  6. LENALIDOMIDE [Suspect]
     Dosage: 15 MG
  7. LENALIDOMIDE [Suspect]
     Dosage: 10 MG
  8. DEXAMETHASONE [Suspect]
     Dosage: 20 MG
     Route: 048
  9. LENALIDOMIDE [Suspect]
     Dosage: 5 MG
     Dates: end: 20100301

REACTIONS (21)
  - MUSCULAR WEAKNESS [None]
  - SPINAL FRACTURE [None]
  - DERMATITIS BULLOUS [None]
  - CONSTIPATION [None]
  - LEUKOPENIA [None]
  - DIARRHOEA [None]
  - VISUAL IMPAIRMENT [None]
  - BONE PAIN [None]
  - DECREASED APPETITE [None]
  - DISEASE PROGRESSION [None]
  - HAEMOGLOBIN DECREASED [None]
  - MICTURITION URGENCY [None]
  - POLYURIA [None]
  - ANAEMIA [None]
  - MUSCLE SPASMS [None]
  - NAUSEA [None]
  - NEUTROPENIA [None]
  - HYPERTENSION [None]
  - PERIPHERAL SENSORY NEUROPATHY [None]
  - OEDEMA PERIPHERAL [None]
  - HERPES VIRUS INFECTION [None]
